FAERS Safety Report 21861042 (Version 7)
Quarter: 2023Q1

REPORT INFORMATION
  Report Type: Report from Study
  Country: FR (occurrence: FR)
  Receive Date: 20230113
  Receipt Date: 20230322
  Transmission Date: 20230418
  Serious: Yes (Hospitalization)
  Sender: FDA-Public Use
  Company Number: FR-GLAXOSMITHKLINE-FR2023GSK004211

PATIENT

DRUGS (14)
  1. NIRAPARIB [Suspect]
     Active Substance: NIRAPARIB
     Indication: Ovarian cancer
     Dosage: 100 MG, QD
     Route: 048
     Dates: start: 20221114, end: 20221213
  2. NIRAPARIB [Suspect]
     Active Substance: NIRAPARIB
     Dosage: 100 MG, QD
     Route: 048
     Dates: end: 20221222
  3. ZN-C3 [Suspect]
     Active Substance: ZN-C3
     Indication: Ovarian cancer
     Dosage: 250 MG, QD
     Route: 048
     Dates: start: 20221114, end: 20221206
  4. ZN-C3 [Suspect]
     Active Substance: ZN-C3
     Dosage: 250 MG, QD
     Route: 048
     Dates: start: 20221213, end: 20221220
  5. SPAGULAX [Concomitant]
     Active Substance: HERBALS\PLANTAGO OVATA SEED
     Indication: Abdominal pain
     Dosage: UNK
     Dates: start: 20221122
  6. SPAGULAX [Concomitant]
     Active Substance: HERBALS\PLANTAGO OVATA SEED
     Indication: Constipation
  7. SPASFON (PHLOROGLUCINOL HYDRATE) [Concomitant]
     Indication: Abdominal pain
     Dosage: UNK
     Dates: start: 20221122
  8. LEVOTHYROXINE [Concomitant]
     Active Substance: LEVOTHYROXINE
     Indication: Hypothyroidism
     Dosage: UNK
     Dates: start: 20221114
  9. ACETAMINOPHEN [Concomitant]
     Active Substance: ACETAMINOPHEN
     Indication: Abdominal pain
     Dosage: UNK
     Dates: start: 20221114
  10. CARBOPLATIN [Concomitant]
     Active Substance: CARBOPLATIN
     Indication: Ovarian cancer metastatic
     Dosage: UNK
     Dates: start: 202005, end: 202012
  11. GEMCITABINE [Concomitant]
     Active Substance: GEMCITABINE
     Indication: Ovarian cancer metastatic
     Dosage: UNK
     Dates: start: 202005, end: 202012
  12. AVASTIN [Concomitant]
     Active Substance: BEVACIZUMAB
     Indication: Product used for unknown indication
     Dosage: UNK
     Dates: start: 201805
  13. PREDNISOLONE METASULFOBENZOATE SODIUM [Concomitant]
     Active Substance: PREDNISOLONE SODIUM METAZOATE
     Indication: Vomiting
     Dosage: UNK
     Dates: start: 20221123, end: 20221128
  14. BISOPROLOL [Concomitant]
     Active Substance: BISOPROLOL
     Indication: Palpitations
     Dosage: 1.25 MG IN THE MORNING

REACTIONS (2)
  - Gastrointestinal haemorrhage [Recovered/Resolved]
  - Urinary tract infection [Recovered/Resolved]

NARRATIVE: CASE EVENT DATE: 20221223
